FAERS Safety Report 8043173-4 (Version None)
Quarter: 2012Q1

REPORT INFORMATION
  Report Type: 
  Country: None (occurrence: None)
  Receive Date: 20120112
  Receipt Date: 20120106
  Transmission Date: 20120608
  Serious: Yes (Hospitalization, Other)
  Sender: FDA-Public Use
  Company Number: US-ASTRAZENECA-2012SE01240

PATIENT
  Age: 52 Year
  Sex: Female
  Weight: 79.4 kg

DRUGS (4)
  1. GABAPENTIN [Concomitant]
  2. SEROQUEL [Suspect]
     Indication: BIPOLAR DISORDER
     Dosage: 6 OF 50 MG DURING THE DAY AND 2 OF 400 MG AT NIGHT
     Route: 048
  3. NORCO [Concomitant]
     Indication: HEADACHE
  4. DIVALPROEX SODIUM [Concomitant]

REACTIONS (2)
  - SKIN CANCER [None]
  - BRAIN NEOPLASM [None]
